FAERS Safety Report 5931072-0 (Version None)
Quarter: 2008Q4

REPORT INFORMATION
  Report Type: 
  Country: None (occurrence: None)
  Receive Date: 20081027
  Receipt Date: 20081014
  Transmission Date: 20090506
  Serious: Yes (Other)
  Sender: FDA-Public Use
  Company Number: GR-ROCHE-591770

PATIENT
  Age: 70 Year
  Sex: Female

DRUGS (4)
  1. BONIVA [Suspect]
     Indication: DRUG USE FOR UNKNOWN INDICATION
     Dosage: FORMULATION: F.C.TABS.
     Route: 048
  2. CALCITONIN [Concomitant]
  3. IDEOS [Concomitant]
  4. VALSARTAN [Concomitant]
     Dosage: DRUG: CO-DALZAC.

REACTIONS (3)
  - HAEMATOCRIT DECREASED [None]
  - HAEMOGLOBIN DECREASED [None]
  - RED BLOOD CELL COUNT DECREASED [None]
